FAERS Safety Report 4721947-2 (Version None)
Quarter: 2005Q3

REPORT INFORMATION
  Report Type: 
  Country: None (occurrence: None)
  Receive Date: 20050722
  Receipt Date: 20050712
  Transmission Date: 20060218
  Serious: Yes (Other)
  Sender: FDA-Public Use
  Company Number: US-BRISTOL-MYERS SQUIBB COMPANY-13034269

PATIENT
  Age: 57 Year
  Sex: Male

DRUGS (1)
  1. KENALOG [Suspect]
     Indication: RETINAL VEIN OCCLUSION

REACTIONS (1)
  - MACULAR OEDEMA [None]
